FAERS Safety Report 14618500 (Version 1)
Quarter: 2018Q1

REPORT INFORMATION
  Report Type: Spontaneous
  Country: US (occurrence: US)
  Receive Date: 20180309
  Receipt Date: 20180309
  Transmission Date: 20180509
  Serious: No
  Sender: FDA-Public Use
  Company Number: US-MYLANLABS-2018M1011624

PATIENT
  Age: 31 Year
  Sex: Female

DRUGS (1)
  1. ETHINYLESTRADIOL/FERROUS FUMARATE/NORETHISTERONE [Suspect]
     Active Substance: ETHINYL ESTRADIOL\FERROUS FUMARATE\NORETHINDRONE
     Indication: PRODUCT USED FOR UNKNOWN INDICATION

REACTIONS (3)
  - Intentional product misuse [Unknown]
  - Headache [Unknown]
  - Drug dose omission [Unknown]
